FAERS Safety Report 8476517-X (Version None)
Quarter: 2012Q2

REPORT INFORMATION
  Report Type: 
  Country: None (occurrence: None)
  Receive Date: 20120628
  Receipt Date: 20120622
  Transmission Date: 20120825
  Serious: Yes (Other)
  Sender: FDA-Public Use
  Company Number: IN-B.I. PHARMACEUTICALS,INC./RIDGEFIELD-2012-CS-00910IG

PATIENT
  Age: 63 Year
  Sex: Male
  Weight: 58 kg

DRUGS (2)
  1. INSULIN [Concomitant]
     Indication: DIABETES MELLITUS
  2. PRADAXA [Suspect]
     Dosage: 110 MG
     Route: 048
     Dates: start: 20120613

REACTIONS (2)
  - CREATININE RENAL CLEARANCE DECREASED [None]
  - HAEMATURIA [None]
